FAERS Safety Report 15125629 (Version 1)
Quarter: 2018Q3

REPORT INFORMATION
  Report Type: Spontaneous
  Country: US (occurrence: US)
  Receive Date: 20180614
  Receipt Date: 20180614
  Transmission Date: 20181010
  Serious: Yes (Death)
  Sender: FDA-Public Use
  Company Number: None

PATIENT
  Age: 63 Year
  Sex: Male

DRUGS (12)
  1. METFORMIN [Concomitant]
     Active Substance: METFORMIN HYDROCHLORIDE
     Dates: start: 20170221
  2. XELJANZ [Suspect]
     Active Substance: TOFACITINIB CITRATE
     Indication: RHEUMATOID ARTHRITIS
     Route: 048
     Dates: start: 20171013
  3. CLONIDINE. [Concomitant]
     Active Substance: CLONIDINE
     Dates: start: 20170221
  4. PREDNISONE. [Concomitant]
     Active Substance: PREDNISONE
     Dates: start: 20170221
  5. CELEXA [Concomitant]
     Active Substance: CITALOPRAM HYDROBROMIDE
     Dates: start: 20170221
  6. HYDROXYCHLOR [Concomitant]
     Active Substance: HYDROXYCHLOROQUINE
     Dates: start: 20170221
  7. LIPITOR [Concomitant]
     Active Substance: ATORVASTATIN CALCIUM
     Dates: start: 20170221
  8. ALDACTONE [Concomitant]
     Active Substance: SPIRONOLACTONE
     Dates: start: 20170221
  9. BUSPIRONE [Concomitant]
     Active Substance: BUSPIRONE HYDROCHLORIDE
     Dates: start: 20170221
  10. NORVASC [Concomitant]
     Active Substance: AMLODIPINE BESYLATE
     Dates: start: 20170221
  11. ARAVA [Concomitant]
     Active Substance: LEFLUNOMIDE
     Dates: start: 20170221
  12. FUROSEMIDE. [Concomitant]
     Active Substance: FUROSEMIDE
     Dates: start: 20170221

REACTIONS (1)
  - Death [None]

NARRATIVE: CASE EVENT DATE: 20180530
